FAERS Safety Report 5075066-9 (Version None)
Quarter: 2006Q3

REPORT INFORMATION
  Report Type: 
  Country: None (occurrence: None)
  Receive Date: 20060804
  Receipt Date: 20060713
  Transmission Date: 20061208
  Serious: Yes (Other)
  Sender: FDA-Public Use
  Company Number: 2006092733

PATIENT
  Sex: Male

DRUGS (2)
  1. BEXTRA [Suspect]
  2. VIOXX [Suspect]

REACTIONS (2)
  - CEREBROVASCULAR ACCIDENT [None]
  - POLYTRAUMATISM [None]
